FAERS Safety Report 12911631 (Version 1)
Quarter: 2016Q4

REPORT INFORMATION
  Report Type: Not Available
  Country: CH (occurrence: CH)
  Receive Date: 20161104
  Receipt Date: 20161104
  Transmission Date: 20170207
  Serious: Yes (Hospitalization)
  Sender: FDA-Public Use
  Company Number: CH-NAPPMUNDI-DEU-2016-0018386

PATIENT
  Age: 96 Year
  Sex: Female

DRUGS (11)
  1. BACTRIM [Suspect]
     Active Substance: SULFAMETHOXAZOLE\TRIMETHOPRIM
     Indication: URINARY TRACT INFECTION
     Dosage: UNK UNK, BID [1-0-1 ]
     Route: 065
     Dates: start: 20161006, end: 20161010
  2. CONCOR 5 PLUS [Concomitant]
     Dosage: 5 MG, AM [1-0-0 ]
  3. PLAVIX [Concomitant]
     Active Substance: CLOPIDOGREL BISULFATE
     Dosage: 75 MG, AM [1-0-0]
     Dates: end: 20161010
  4. BETASERC                           /00141801/ [Concomitant]
     Active Substance: BETAHISTINE
     Dosage: 16 MG, TID [1-1-1]
  5. AMLODIPIN                          /00972401/ [Concomitant]
     Active Substance: AMLODIPINE BESYLATE
     Dosage: 10 MG, AM [1-0-0]
     Dates: end: 20161010
  6. ADALAT CRONO [Concomitant]
     Active Substance: NIFEDIPINE
     Dosage: 20 MG, PRN
  7. PANTOZOL [Suspect]
     Active Substance: PANTOPRAZOLE SODIUM
     Indication: PRODUCT USED FOR UNKNOWN INDICATION
     Dosage: 40 MG, AM [1-0-0]
     Route: 065
     Dates: end: 20161010
  8. TEMESTA                            /00273201/ [Concomitant]
     Active Substance: LORAZEPAM
     Dosage: UNK, PRN
  9. NITROGLYCERIN. [Concomitant]
     Active Substance: NITROGLYCERIN
  10. NOVALGIN [Concomitant]
     Active Substance: METAMIZOLE SODIUM
     Dosage: 500 MG, TID [1-1-1]
  11. TARGIN [Suspect]
     Active Substance: NALOXONE HYDROCHLORIDE\OXYCODONE HYDROCHLORIDE
     Indication: PRODUCT USED FOR UNKNOWN INDICATION
     Dosage: 5 MG, 1/2-0-0
     Route: 065
     Dates: end: 20161010

REACTIONS (1)
  - Fixed drug eruption [Recovering/Resolving]

NARRATIVE: CASE EVENT DATE: 20161008
